FAERS Safety Report 4371294-6 (Version None)
Quarter: 2004Q2

REPORT INFORMATION
  Report Type: 
  Country: None (occurrence: None)
  Receive Date: 20040604
  Receipt Date: 20040525
  Transmission Date: 20050107
  Serious: Yes (Death)
  Sender: FDA-Public Use
  Company Number: BE-MERCK-0405BEL00037

PATIENT
  Age: 61 Year
  Sex: Male

DRUGS (3)
  1. CANCIDAS [Suspect]
     Indication: ASPERGILLOSIS
     Route: 042
     Dates: start: 20040319, end: 20040405
  2. FLUCONAZOLE [Concomitant]
     Indication: ANTIFUNGAL PROPHYLAXIS
     Route: 048
     Dates: start: 20040302, end: 20040322
  3. VORICONAZOLE [Concomitant]
     Indication: ASPERGILLOSIS
     Route: 042
     Dates: start: 20040401, end: 20040405

REACTIONS (1)
  - DEATH [None]
